FAERS Safety Report 14351124 (Version 1)
Quarter: 2018Q1

REPORT INFORMATION
  Report Type: Spontaneous
  Country: US (occurrence: US)
  Receive Date: 20180104
  Receipt Date: 20180104
  Transmission Date: 20180509
  Serious: Yes (Hospitalization)
  Sender: FDA-Public Use
  Company Number: US-JNJFOC-20171236271

PATIENT
  Age: 65 Year
  Sex: Male
  Weight: 64 kg

DRUGS (2)
  1. LOSARTAN. [Suspect]
     Active Substance: LOSARTAN
     Indication: PRODUCT USED FOR UNKNOWN INDICATION
     Route: 048
     Dates: end: 201703
  2. INVOKANA [Suspect]
     Active Substance: CANAGLIFLOZIN
     Indication: TYPE 2 DIABETES MELLITUS
     Route: 048
     Dates: start: 20160317, end: 20170319

REACTIONS (5)
  - Osteomyelitis [Unknown]
  - Foot amputation [Unknown]
  - Muscle spasms [Unknown]
  - Diabetic ulcer [Unknown]
  - Bone operation [Unknown]

NARRATIVE: CASE EVENT DATE: 201703
